FAERS Safety Report 7633733-4 (Version None)
Quarter: 2011Q3

REPORT INFORMATION
  Report Type: 
  Country: None (occurrence: None)
  Receive Date: 20110714
  Receipt Date: 20101013
  Transmission Date: 20111222
  Serious: Yes (Hospitalization)
  Sender: FDA-Public Use
  Company Number: 2010SP055225

PATIENT

DRUGS (2)
  1. INTEGRILIN [Suspect]
     Indication: PRODUCT USED FOR UNKNOWN INDICATION
  2. ANGIOMAX [Suspect]
     Indication: PRODUCT USED FOR UNKNOWN INDICATION

REACTIONS (2)
  - GINGIVAL BLEEDING [None]
  - HAEMORRHAGE [None]
